FAERS Safety Report 7141658-6 (Version None)
Quarter: 2010Q4

REPORT INFORMATION
  Report Type: 
  Country: None (occurrence: None)
  Receive Date: 20101207
  Receipt Date: 20101124
  Transmission Date: 20110411
  Serious: Yes (Hospitalization, Other)
  Sender: FDA-Public Use
  Company Number: PHHY2010BR80524

PATIENT
  Sex: Female

DRUGS (1)
  1. ACLASTA [Suspect]
     Dosage: 5MG/100ML
     Route: 042

REACTIONS (5)
  - AMNESIA [None]
  - CATARACT OPERATION [None]
  - CEREBRAL ISCHAEMIA [None]
  - FALL [None]
  - HEAD INJURY [None]
